FAERS Safety Report 13799767 (Version 1)
Quarter: 2017Q3

REPORT INFORMATION
  Report Type: Spontaneous
  Country: US (occurrence: US)
  Receive Date: 20170727
  Receipt Date: 20170727
  Transmission Date: 20171127
  Serious: Yes (Other)
  Sender: FDA-Public Use
  Company Number: None

PATIENT
  Age: 55 Year
  Sex: Female
  Weight: 78.75 kg

DRUGS (3)
  1. DUREZOL EYE DROPS [Concomitant]
  2. BESIVANCE [Suspect]
     Active Substance: BESIFLOXACIN
     Indication: CATARACT
     Dosage: ?          QUANTITY:1 DROP(S);?
     Route: 047
     Dates: start: 20170724, end: 20170724
  3. AK-POLY-BAC EYE OINTMENT [Concomitant]

REACTIONS (2)
  - Eye swelling [None]
  - Ocular hyperaemia [None]

NARRATIVE: CASE EVENT DATE: 20170724
